FAERS Safety Report 4352919-8 (Version None)
Quarter: 2004Q2

REPORT INFORMATION
  Report Type: 
  Country: None (occurrence: None)
  Receive Date: 20040429
  Receipt Date: 20040422
  Transmission Date: 20050107
  Serious: Yes (Hospitalization)
  Sender: FDA-Public Use
  Company Number: A044-002-004934

PATIENT
  Age: 90 Year
  Sex: Female

DRUGS (7)
  1. ARICEPT [Suspect]
     Indication: DEMENTIA
     Dosage: SEE IMAGE
     Route: 048
     Dates: start: 20040101, end: 20040101
  2. ARICEPT [Suspect]
     Indication: DEMENTIA
     Dosage: SEE IMAGE
     Route: 048
     Dates: start: 20031110, end: 20040325
  3. MOLSIDOMINE (MOLSIDOMINE) [Concomitant]
  4. ASPIRIN [Concomitant]
  5. DILTIAZEM [Concomitant]
  6. ADANCOR (NICORANDIL) [Concomitant]
  7. OMEPRAZOLE [Concomitant]

REACTIONS (2)
  - GASTROENTERITIS [None]
  - THROMBOCYTOPENIC PURPURA [None]
